FAERS Safety Report 8125907-3 (Version None)
Quarter: 2012Q1

REPORT INFORMATION
  Report Type: 
  Country: None (occurrence: None)
  Receive Date: 20120209
  Receipt Date: 20120201
  Transmission Date: 20120608
  Serious: Yes (Hospitalization, Other)
  Sender: FDA-Public Use
  Company Number: TN-ROXANE LABORATORIES, INC.-2012-RO-00586RO

PATIENT
  Age: 3 Month
  Sex: Male

DRUGS (1)
  1. LIDOCAINE [Suspect]
     Indication: NERVE BLOCK
     Route: 058

REACTIONS (3)
  - ATELECTASIS [None]
  - GRAND MAL CONVULSION [None]
  - TOXICITY TO VARIOUS AGENTS [None]
